FAERS Safety Report 4312884-6 (Version None)
Quarter: 2004Q1

REPORT INFORMATION
  Report Type: 
  Country: None (occurrence: None)
  Receive Date: 20040304
  Receipt Date: 20040216
  Transmission Date: 20041129
  Serious: Yes (Other)
  Sender: FDA-Public Use
  Company Number: MESA 2003-025

PATIENT
  Age: 45 Year
  Sex: Male

DRUGS (4)
  1. CANASA [Suspect]
     Dosage: 500 MG
     Route: 054
  2. ROWASA [Concomitant]
  3. ASACAOL [Concomitant]
  4. PRAVACHOL [Concomitant]

REACTIONS (3)
  - COLITIS [None]
  - DRUG INEFFECTIVE [None]
  - PHARMACEUTICAL PRODUCT COMPLAINT [None]
